FAERS Safety Report 8372967-0 (Version None)
Quarter: 2012Q2

REPORT INFORMATION
  Report Type: 
  Country: None (occurrence: None)
  Receive Date: 20120521
  Receipt Date: 20110830
  Transmission Date: 20120825
  Serious: No
  Sender: FDA-Public Use
  Company Number: US-ASTRAZENECA-2011SE61078

PATIENT
  Age: 54 Year
  Sex: Female

DRUGS (3)
  1. ATENOLOL [Concomitant]
     Indication: SUPRAVENTRICULAR TACHYCARDIA
     Dosage: UNKNOWN
  2. PRILOSEC OTC [Suspect]
     Route: 048
  3. VICODIN HP [Concomitant]
     Dosage: UNKNOWN

REACTIONS (3)
  - CHOKING [None]
  - DYSPHAGIA [None]
  - SENSATION OF FOREIGN BODY [None]
